FAERS Safety Report 6269373-1 (Version None)
Quarter: 2009Q4

REPORT INFORMATION
  Report Type: 
  Country: None (occurrence: None)
  Receive Date: 20090713
  Receipt Date: 20090627
  Transmission Date: 20100525
  Serious: Yes (Other)
  Sender: FDA-Public Use
  Company Number: 09-071

PATIENT
  Age: 89 Year
  Sex: Male

DRUGS (1)
  1. CEFEPIME [Suspect]
     Indication: CHOLANGITIS
     Dosage: 1 G EVERY 8 HOURS, IV
     Route: 042

REACTIONS (4)
  - DYSKINESIA [None]
  - ENCEPHALOPATHY [None]
  - RENAL IMPAIRMENT [None]
  - SEPSIS [None]
